FAERS Safety Report 4406630-5 (Version None)
Quarter: 2004Q3

REPORT INFORMATION
  Report Type: 
  Country: None (occurrence: None)
  Receive Date: 20040723
  Receipt Date: 20040720
  Transmission Date: 20050211
  Serious: Yes (Death, Hospitalization, Other)
  Sender: FDA-Public Use
  Company Number: PHRM2004FR02382

PATIENT
  Age: 83 Year
  Sex: Male
  Weight: 45 kg

DRUGS (7)
  1. COTAREG [Suspect]
     Dosage: 1 DF, QD
     Route: 048
  2. SKENAN [Suspect]
     Route: 048
  3. AMLOR [Suspect]
     Dosage: 5 MG, QD
     Route: 048
  4. EXOMUC [Suspect]
     Route: 048
  5. TROXERUTIN [Suspect]
     Route: 065
  6. GEMZAR [Suspect]
     Indication: PLEURAL NEOPLASM
     Dates: end: 20040201
  7. RULID [Suspect]
     Indication: BRONCHITIS
     Dosage: 1 DF, ONCE/SINGLE
     Route: 048
     Dates: start: 20040617, end: 20040617

REACTIONS (28)
  - ALANINE AMINOTRANSFERASE INCREASED [None]
  - ALVEOLITIS [None]
  - ASPARTATE AMINOTRANSFERASE INCREASED [None]
  - BLOOD ALKALINE PHOSPHATASE INCREASED [None]
  - BLOOD CREATININE INCREASED [None]
  - BLOOD GLUCOSE DECREASED [None]
  - BLOOD PRESSURE DECREASED [None]
  - BRONCHITIS [None]
  - CREATININE RENAL CLEARANCE DECREASED [None]
  - CYANOSIS [None]
  - CYTOLYTIC HEPATITIS [None]
  - DYSPNOEA [None]
  - FALL [None]
  - GAMMA-GLUTAMYLTRANSFERASE INCREASED [None]
  - HEART SOUNDS ABNORMAL [None]
  - HEPATIC FAILURE [None]
  - HEPATIC NEOPLASM [None]
  - HEPATITIS FULMINANT [None]
  - HEPATOMEGALY [None]
  - HYPERKALAEMIA [None]
  - HYPONATRAEMIA [None]
  - LIVEDO RETICULARIS [None]
  - LUNG DISORDER [None]
  - OEDEMA PERIPHERAL [None]
  - PLEURAL EFFUSION [None]
  - PLEURAL NEOPLASM [None]
  - PROTHROMBIN LEVEL DECREASED [None]
  - RENAL FAILURE [None]
